FAERS Safety Report 17958605 (Version 1)
Quarter: 2020Q2

REPORT INFORMATION
  Report Type: Spontaneous
  Country: GB (occurrence: GB)
  Receive Date: 20200630
  Receipt Date: 20200630
  Transmission Date: 20200714
  Serious: Yes (Life-Threatening, Hospitalization)
  Sender: FDA-Public Use
  Company Number: GB-TEVA-2020-GB-1792227

PATIENT
  Age: 47 Year
  Sex: Female

DRUGS (6)
  1. LANSOPRAZOLE. [Concomitant]
     Active Substance: LANSOPRAZOLE
  2. SODIUM VALPROATE [Concomitant]
     Active Substance: VALPROATE SODIUM
  3. THIAMINE. [Concomitant]
     Active Substance: THIAMINE
  4. CLONAZEPAM. [Concomitant]
     Active Substance: CLONAZEPAM
  5. CANDESARTAN. [Concomitant]
     Active Substance: CANDESARTAN
  6. QUETIAPINE. [Suspect]
     Active Substance: QUETIAPINE
     Indication: BIPOLAR DISORDER
     Dosage: VARIABLE. MAX 400MG IN MORNING, 600MG AT NIGHT UNIT DOSE: 1 GRAM
     Route: 048
     Dates: start: 2009, end: 20200530

REACTIONS (1)
  - Neutropenic sepsis [Recovered/Resolved]
